FAERS Safety Report 17004787 (Version 3)
Quarter: 2019Q4

REPORT INFORMATION
  Report Type: Spontaneous
  Country: JP (occurrence: JP)
  Receive Date: 20191107
  Receipt Date: 20191203
  Transmission Date: 20200122
  Serious: Yes (Other)
  Sender: FDA-Public Use
  Company Number: JP-PFIZER INC-2019478713

PATIENT
  Age: 73 Year
  Sex: Male

DRUGS (4)
  1. LOXOPROFEN NA [Suspect]
     Active Substance: LOXOPROFEN SODIUM
     Dosage: UNK
     Route: 048
  2. LANSOPRAZOLE. [Suspect]
     Active Substance: LANSOPRAZOLE
     Dosage: UNK
     Route: 048
  3. CELECOX [Suspect]
     Active Substance: CELECOXIB
     Dosage: UNK
     Route: 048
  4. REBAMIPIDE [Suspect]
     Active Substance: REBAMIPIDE
     Dosage: UNK
     Route: 048

REACTIONS (2)
  - Shock haemorrhagic [Recovered/Resolved]
  - Small intestine ulcer [Recovered/Resolved]
